FAERS Safety Report 7849270-8 (Version None)
Quarter: 2011Q4

REPORT INFORMATION
  Report Type: 
  Country: None (occurrence: None)
  Receive Date: 20111021
  Receipt Date: 20111013
  Transmission Date: 20120403
  Serious: Yes (Other)
  Sender: FDA-Public Use
  Company Number: AUR-APL-2011-05495

PATIENT
  Age: 64 Year
  Sex: Male
  Weight: 122 kg

DRUGS (3)
  1. CRESTOR [Suspect]
     Indication: PRODUCT USED FOR UNKNOWN INDICATION
  2. SIMVASTATIN [Suspect]
     Indication: PRODUCT USED FOR UNKNOWN INDICATION
  3. LIPITOR [Suspect]
     Indication: MYOCARDIAL INFARCTION
     Dates: end: 19980101

REACTIONS (5)
  - MYOCARDIAL INFARCTION [None]
  - ECONOMIC PROBLEM [None]
  - BREAST DISORDER [None]
  - WEIGHT INCREASED [None]
  - GYNAECOMASTIA [None]
